FAERS Safety Report 4772822-9 (Version None)
Quarter: 2005Q3

REPORT INFORMATION
  Report Type: 
  Country: None (occurrence: None)
  Receive Date: 20050919
  Receipt Date: 20050607
  Transmission Date: 20060218
  Serious: Yes (Hospitalization)
  Sender: FDA-Public Use
  Company Number: US-MERCK-0506USA01418

PATIENT
  Age: 64 Year
  Sex: Female
  Weight: 85 kg

DRUGS (12)
  1. VIOXX [Suspect]
     Indication: OSTEOARTHRITIS
     Route: 048
     Dates: start: 20000101, end: 20020708
  2. VIOXX [Suspect]
     Indication: TENDONITIS
     Route: 048
     Dates: start: 20000101, end: 20020708
  3. PRILOSEC [Concomitant]
     Route: 048
  4. SYNTHROID [Concomitant]
     Route: 048
  5. AMBIEN [Concomitant]
     Route: 048
  6. LORATADINE [Concomitant]
     Route: 048
  7. ZITHROMAX [Concomitant]
     Route: 048
  8. FLONASE [Concomitant]
     Route: 055
  9. NOVOLIN [Concomitant]
     Route: 058
  10. FLOVENT [Concomitant]
     Route: 055
  11. ACEON [Concomitant]
     Route: 048
  12. NEXIUM [Concomitant]
     Route: 048

REACTIONS (12)
  - BLOOD CHOLESTEROL INCREASED [None]
  - CARDIOVASCULAR DISORDER [None]
  - DIABETES MELLITUS [None]
  - DIABETES MELLITUS INADEQUATE CONTROL [None]
  - DRUG INEFFECTIVE [None]
  - HYPOTHYROIDISM [None]
  - MULTI-ORGAN DISORDER [None]
  - MYOCARDIAL INFARCTION [None]
  - OTITIS MEDIA [None]
  - PAIN [None]
  - SHOULDER PAIN [None]
  - VENTRICULAR HYPERTROPHY [None]
